FAERS Safety Report 8353930-2 (Version None)
Quarter: 2012Q2

REPORT INFORMATION
  Report Type: 
  Country: None (occurrence: None)
  Receive Date: 20120511
  Receipt Date: 20120503
  Transmission Date: 20120825
  Serious: Yes (Hospitalization, Other)
  Sender: FDA-Public Use
  Company Number: US-AMGEN-USASP2012028379

PATIENT
  Age: 66 Year
  Sex: Female

DRUGS (1)
  1. ENBREL [Suspect]
     Indication: RHEUMATOID ARTHRITIS
     Dosage: 25 MG, 2 TIMES/WK
     Dates: start: 20020601, end: 20110601

REACTIONS (7)
  - HYPOAESTHESIA [None]
  - WEIGHT DECREASED [None]
  - VOMITING [None]
  - INFECTION [None]
  - INJECTION SITE PAIN [None]
  - NERVE COMPRESSION [None]
  - INTERVERTEBRAL DISC PROTRUSION [None]
